FAERS Safety Report 6932520-X (Version None)
Quarter: 2010Q3

REPORT INFORMATION
  Report Type: 
  Country: None (occurrence: None)
  Receive Date: 20100818
  Receipt Date: 20100806
  Transmission Date: 20110219
  Serious: Yes (Hospitalization)
  Sender: FDA-Public Use
  Company Number: UTC-001317

PATIENT
  Age: 55 Year
  Sex: Female
  Weight: 59 kg

DRUGS (9)
  1. REMODULIN [Suspect]
     Dosage: 77.472 UG/KG (0.0538 UG/KG, 1 IN 1 MIN), INTRAVENOUS
     Route: 042
     Dates: start: 20080409
  2. CELLCEPT [Concomitant]
  3. PLAQUENIL [Concomitant]
  4. DIGOXIN [Concomitant]
  5. NEXIUM [Concomitant]
  6. METANX (METANX) [Concomitant]
  7. PREDNISOLONE [Concomitant]
  8. URSO FORTE [Concomitant]
  9. EVOXAC [Concomitant]

REACTIONS (2)
  - INFLAMMATION [None]
  - LIVER DISORDER [None]
